FAERS Safety Report 10375091 (Version 1)
Quarter: 2014Q3

REPORT INFORMATION
  Report Type: Spontaneous
  Country: US (occurrence: None)
  Receive Date: 20140808
  Receipt Date: 20140808
  Transmission Date: 20150326
  Serious: Yes (Hospitalization, Disabling)
  Sender: FDA-Public Use
  Company Number: None

PATIENT
  Age: 32 Year
  Sex: Male
  Weight: 77.11 kg

DRUGS (2)
  1. XOLAIR [Suspect]
     Active Substance: OMALIZUMAB
     Indication: SEASONAL ALLERGY
     Dosage: ONCE PER MONTH INTO THE MUSCLE
  2. XOLAIR [Suspect]
     Active Substance: OMALIZUMAB
     Indication: ASTHMA
     Dosage: ONCE PER MONTH INTO THE MUSCLE

REACTIONS (3)
  - Anxiety [None]
  - Insomnia [None]
  - Headache [None]

NARRATIVE: CASE EVENT DATE: 20140620
